FAERS Safety Report 26158984 (Version 1)
Quarter: 2025Q4

REPORT INFORMATION
  Report Type: Report from Study
  Country: US (occurrence: US)
  Receive Date: 20251215
  Receipt Date: 20251215
  Transmission Date: 20260117
  Serious: Yes (Hospitalization)
  Sender: ABBVIE
  Company Number: US-ABBVIE-6512601

PATIENT
  Age: 31 Year
  Sex: Female

DRUGS (2)
  1. SKYRIZI [Suspect]
     Active Substance: RISANKIZUMAB-RZAA
     Indication: Psoriasis
     Route: 058
     Dates: start: 202507, end: 20251020
  2. SKYRIZI [Suspect]
     Active Substance: RISANKIZUMAB-RZAA
     Indication: Psoriatic arthropathy

REACTIONS (15)
  - Blister [Not Recovered/Not Resolved]
  - Skin exfoliation [Unknown]
  - Fatigue [Unknown]
  - Chills [Unknown]
  - Pyrexia [Unknown]
  - Tremor [Unknown]
  - Diarrhoea [Recovered/Resolved]
  - Pain of skin [Not Recovered/Not Resolved]
  - Drug hypersensitivity [Unknown]
  - Bedridden [Unknown]
  - Skin burning sensation [Not Recovered/Not Resolved]
  - Helicobacter infection [Unknown]
  - Asthenia [Not Recovered/Not Resolved]
  - Discomfort [Recovered/Resolved]
  - Fatigue [Recovered/Resolved]

NARRATIVE: CASE EVENT DATE: 20250101
